FAERS Safety Report 9025647 (Version 3)
Quarter: 2013Q3

REPORT INFORMATION
  Report Type: Spontaneous
  Country: FR (occurrence: FR)
  Receive Date: 20130123
  Receipt Date: 20130703
  Transmission Date: 20140515
  Serious: Yes (Life-Threatening, Hospitalization)
  Sender: FDA-Public Use
  Company Number: FR-BRISTOL-MYERS SQUIBB COMPANY-17284662

PATIENT
  Age: 58 Year
  Sex: Female

DRUGS (6)
  1. SPRYCEL [Suspect]
     Indication: CHRONIC MYELOID LEUKAEMIA
     Dosage: INITIALLY 100MG/D;50MG/D FROM JUL08,DECRE TO 40 MG/DY IN MAY09 WITHDRAWN IN 2011 THEN RE-INTRODUCED
     Route: 048
     Dates: start: 200705
  2. TOPALGIC [Concomitant]
  3. GLUCOPHAGE [Concomitant]
  4. LASILIX [Concomitant]
  5. LEVOTHYROX [Concomitant]
  6. ISOPTINE [Concomitant]

REACTIONS (3)
  - Posterior reversible encephalopathy syndrome [Recovered/Resolved]
  - Hypertension [Unknown]
  - Cardiac disorder [Unknown]
